FAERS Safety Report 22615702 (Version 2)
Quarter: 2023Q4

REPORT INFORMATION
  Report Type: Spontaneous
  Country: RU (occurrence: RU)
  Receive Date: 20230619
  Receipt Date: 20231006
  Transmission Date: 20240109
  Serious: Yes (Life-Threatening, Hospitalization, Other)
  Sender: FDA-Public Use
  Company Number: RU-BAYER-2023A085229

PATIENT
  Age: 35 Year
  Sex: Female
  Weight: 74 kg

DRUGS (1)
  1. ULTRAVIST [Suspect]
     Active Substance: IOPROMIDE
     Indication: Computerised tomogram abdomen
     Dosage: 90 ML, ONCE
     Route: 042
     Dates: start: 20230607, end: 20230607

REACTIONS (3)
  - Anaphylactic shock [None]
  - Urticaria [None]
  - Hyperaemia [None]

NARRATIVE: CASE EVENT DATE: 20230607
